FAERS Safety Report 12911867 (Version 1)
Quarter: 2016Q4

REPORT INFORMATION
  Report Type: Spontaneous
  Country: US (occurrence: US)
  Receive Date: 20161102
  Receipt Date: 20161102
  Transmission Date: 20170207
  Serious: Yes (Life-Threatening, Hospitalization)
  Sender: FDA-Public Use
  Company Number: None

PATIENT
  Age: 42 Year
  Sex: Male
  Weight: 105.3 kg

DRUGS (1)
  1. ALLOPURINOL. [Suspect]
     Active Substance: ALLOPURINOL
     Route: 048
     Dates: start: 20160623, end: 20160805

REACTIONS (9)
  - Acute kidney injury [None]
  - Tachycardia [None]
  - Vomiting [None]
  - Nausea [None]
  - Blister [None]
  - Hyponatraemia [None]
  - Hepatic enzyme increased [None]
  - Drug reaction with eosinophilia and systemic symptoms [None]
  - Rash [None]

NARRATIVE: CASE EVENT DATE: 20160805
